FAERS Safety Report 26042669 (Version 1)
Quarter: 2025Q4

REPORT INFORMATION
  Report Type: Spontaneous
  Country: EU (occurrence: EU)
  Receive Date: 20251113
  Receipt Date: 20251113
  Transmission Date: 20260117
  Serious: Yes (Death, Other)
  Sender: GLAXOSMITHKLINE
  Company Number: EU-GSK-PT2025EME144019

PATIENT
  Age: 64 Year
  Sex: Female

DRUGS (1)
  1. MOMELOTINIB [Suspect]
     Active Substance: MOMELOTINIB
     Indication: Product used for unknown indication
     Dosage: 200 MG

REACTIONS (3)
  - Craniocerebral injury [Fatal]
  - Subdural haematoma [Fatal]
  - Off label use [Unknown]

NARRATIVE: CASE EVENT DATE: 20250301
